FAERS Safety Report 5443085-6 (Version None)
Quarter: 2007Q3

REPORT INFORMATION
  Report Type: 
  Country: None (occurrence: None)
  Receive Date: 20070830
  Receipt Date: 20070819
  Transmission Date: 20080115
  Serious: Yes (Death)
  Sender: FDA-Public Use
  Company Number: 160536ISR

PATIENT
  Age: 81 Year
  Sex: Female

DRUGS (7)
  1. AZILECT [Suspect]
     Indication: PARKINSON'S DISEASE
     Dosage: 1 MG (1 MG, 1 IN 1 D), ORAL
     Route: 048
     Dates: start: 20070511
  2. RANITIDINE HYDROCHLORIDE [Concomitant]
  3. MORPHINE [Concomitant]
  4. MADOPAR [Concomitant]
  5. PARACETAMOL [Concomitant]
  6. METOCLOPRAMIDE HYDROCHLORIDE [Concomitant]
  7. HEPAGRISEVIT FORTE-N [Concomitant]

REACTIONS (3)
  - CEREBRAL INFARCTION [None]
  - GASTRIC ULCER [None]
  - GASTROINTESTINAL HAEMORRHAGE [None]
